FAERS Safety Report 7929070-0 (Version None)
Quarter: 2011Q4

REPORT INFORMATION
  Report Type: 
  Country: None (occurrence: None)
  Receive Date: 20111119
  Receipt Date: 20111111
  Transmission Date: 20120403
  Serious: Yes (Other)
  Sender: FDA-Public Use
  Company Number: US-ASTRAZENECA-2010SE45992

PATIENT
  Age: 76 Year
  Sex: Female

DRUGS (2)
  1. ARIMIDEX [Suspect]
     Indication: BREAST CANCER
     Route: 048
  2. ARIMIDEX [Suspect]
     Dosage: DAILY
     Route: 048

REACTIONS (9)
  - VISUAL IMPAIRMENT [None]
  - PRURITUS [None]
  - ALOPECIA [None]
  - BREAST CANCER [None]
  - MALAISE [None]
  - BREAST MASS [None]
  - DRUG DOSE OMISSION [None]
  - FEELING ABNORMAL [None]
  - EYE IRRITATION [None]
